FAERS Safety Report 15674522 (Version 2)
Quarter: 2019Q1

REPORT INFORMATION
  Report Type: Report from Study
  Country: US (occurrence: US)
  Receive Date: 20181130
  Receipt Date: 20190122
  Transmission Date: 20190417
  Serious: Yes (Hospitalization)
  Sender: FDA-Public Use
  Company Number: US-BRISTOL-MYERS SQUIBB COMPANY-BMS-2018-078718

PATIENT
  Sex: Female

DRUGS (1)
  1. NIVOLUMAB [Suspect]
     Active Substance: NIVOLUMAB
     Indication: RENAL CELL CARCINOMA
     Dosage: UNK, Q2WK
     Route: 042
     Dates: start: 201806

REACTIONS (14)
  - Hot flush [Not Recovered/Not Resolved]
  - Musculoskeletal pain [Unknown]
  - Headache [Recovered/Resolved]
  - Feeling cold [Not Recovered/Not Resolved]
  - Constipation [Recovering/Resolving]
  - Arthritis [Unknown]
  - Fatigue [Unknown]
  - Dry skin [Unknown]
  - Adverse event [Unknown]
  - Arthralgia [Unknown]
  - Back pain [Recovering/Resolving]
  - Clavicle fracture [Unknown]
  - Decreased appetite [Unknown]
  - Neoplasm [Unknown]
